FAERS Safety Report 7547800-7 (Version None)
Quarter: 2011Q2

REPORT INFORMATION
  Report Type: 
  Country: None (occurrence: None)
  Receive Date: 20110615
  Receipt Date: 20110603
  Transmission Date: 20111010
  Serious: Yes (Other)
  Sender: FDA-Public Use
  Company Number: US-BIOGENIDEC-2009BI031914

PATIENT
  Age: 52 Year
  Sex: Female

DRUGS (4)
  1. TYSABRI [Suspect]
     Indication: MULTIPLE SCLEROSIS
     Route: 042
     Dates: start: 20081223, end: 20091008
  2. BENADRYL [Concomitant]
     Route: 042
     Dates: start: 20090216
  3. BACLOFEN [Concomitant]
     Indication: MULTIPLE SCLEROSIS
     Dates: start: 20070101
  4. TYSABRI [Suspect]
     Route: 042
     Dates: start: 20100115

REACTIONS (1)
  - BREAST CANCER STAGE I [None]
